FAERS Safety Report 13151469 (Version 1)
Quarter: 2017Q1

REPORT INFORMATION
  Report Type: Spontaneous
  Country: US (occurrence: US)
  Receive Date: 20170122
  Receipt Date: 20170122
  Transmission Date: 20170428
  Serious: No
  Sender: FDA-Public Use
  Company Number: None

PATIENT
  Age: 94 Year
  Sex: Female
  Weight: 45.45 kg

DRUGS (13)
  1. BUDESONIDE. [Concomitant]
     Active Substance: BUDESONIDE
  2. VICODIN [Concomitant]
     Active Substance: ACETAMINOPHEN\HYDROCODONE BITARTRATE
  3. VITMAIN B12 [Concomitant]
  4. FOLIC ACID. [Concomitant]
     Active Substance: FOLIC ACID
  5. PENTASA [Concomitant]
     Active Substance: MESALAMINE
  6. SODIUM BICARBONATE. [Concomitant]
     Active Substance: SODIUM BICARBONATE
  7. VITAMIN D [Concomitant]
     Active Substance: CHOLECALCIFEROL
  8. LOVOTHYROXINE [Concomitant]
  9. POTASSIUM [Concomitant]
     Active Substance: POTASSIUM
  10. TRAMADOL. [Concomitant]
     Active Substance: TRAMADOL
  11. OSELTAMIVIR [Suspect]
     Active Substance: OSELTAMIVIR
     Indication: INFLUENZA
     Dosage: ?          OTHER FREQUENCY:EVERY OTHER DAY;?
     Route: 048
     Dates: start: 20170112, end: 20170120
  12. TYLENOL [Concomitant]
     Active Substance: ACETAMINOPHEN
  13. CALCIUM [Concomitant]
     Active Substance: CALCIUM

REACTIONS (3)
  - Rash [None]
  - Pruritus [None]
  - Hypersensitivity [None]

NARRATIVE: CASE EVENT DATE: 20170119
